FAERS Safety Report 9375083 (Version 1)
Quarter: 2013Q2

REPORT INFORMATION
  Report Type: Report from Study
  Country: GB (occurrence: GB)
  Receive Date: 20130628
  Receipt Date: 20130628
  Transmission Date: 20140414
  Serious: Yes (Other)
  Sender: FDA-Public Use
  Company Number: GB-SANOFI-AVENTIS-2013SA063450

PATIENT
  Age: 66 Year
  Sex: Male
  Weight: 85 kg

DRUGS (7)
  1. DOCETAXEL [Suspect]
     Indication: PROSTATE CANCER
     Route: 042
     Dates: start: 20130403, end: 20130403
  2. DOCETAXEL [Suspect]
     Indication: PROSTATE CANCER
     Route: 042
     Dates: start: 20130515, end: 20130515
  3. DECAPEPTYL [Suspect]
     Indication: PROSTATE CANCER
     Route: 058
     Dates: start: 20130131, end: 20130131
  4. DECAPEPTYL [Suspect]
     Indication: PROSTATE CANCER
     Route: 058
     Dates: start: 20130417, end: 20130417
  5. PREDNISOLONE [Suspect]
     Indication: PROSTATE CANCER
     Route: 048
  6. SIMVASTATIN [Concomitant]
  7. ASPIRIN [Concomitant]

REACTIONS (2)
  - Hyperglycaemia [Not Recovered/Not Resolved]
  - Visual impairment [Not Recovered/Not Resolved]
